APPROVED DRUG PRODUCT: DARVON W/ ASA
Active Ingredient: ASPIRIN; PROPOXYPHENE HYDROCHLORIDE
Strength: 325MG;65MG
Dosage Form/Route: CAPSULE;ORAL
Application: N010996 | Product #005
Applicant: XANODYNE PHARMACEUTICS INC
Approved: Approved Prior to Jan 1, 1982 | RLD: No | RS: No | Type: DISCN